APPROVED DRUG PRODUCT: UKONIQ
Active Ingredient: UMBRALISIB TOSYLATE
Strength: EQ 200MG BASE
Dosage Form/Route: TABLET;ORAL
Application: N213176 | Product #001
Applicant: TG THERAPEUTICS INC
Approved: Feb 5, 2021 | RLD: Yes | RS: No | Type: DISCN

PATENTS:
Patent 10072013 | Expires: Jul 2, 2033
Patent 10072013 | Expires: Jul 2, 2033
Patent 9969740 | Expires: May 26, 2035
Patent 9969740 | Expires: May 26, 2035
Patent 10570142 | Expires: Jul 2, 2033
Patent 10570142 | Expires: Jul 2, 2033
Patent 10414773 | Expires: May 26, 2035
Patent 10414773 | Expires: May 26, 2035
Patent 9669033 | Expires: Jul 2, 2033
Patent 9669033 | Expires: Jul 2, 2033
Patent 10947244 | Expires: May 26, 2035
Patent 10947244 | Expires: May 26, 2035
Patent 10981919 | Expires: Jul 2, 2033
Patent 10981919 | Expires: Jul 2, 2033
Patent 9150579 | Expires: Jul 2, 2033

EXCLUSIVITY:
Code: NCE | Date: Feb 5, 2026